FAERS Safety Report 5702064-1 (Version None)
Quarter: 2008Q2

REPORT INFORMATION
  Report Type: 
  Country: None (occurrence: None)
  Receive Date: 20080411
  Receipt Date: 20070702
  Transmission Date: 20081010
  Serious: No
  Sender: FDA-Public Use
  Company Number: US-ABBOTT-07P-163-0373851-00

PATIENT
  Sex: Male
  Weight: 34.504 kg

DRUGS (5)
  1. DEPAKOTE [Suspect]
     Indication: CONVULSION
     Route: 048
     Dates: start: 20070301
  2. OBETROL [Concomitant]
     Indication: ATTENTION DEFICIT/HYPERACTIVITY DISORDER
     Route: 048
     Dates: start: 20050101
  3. NASAL SPRAY [Concomitant]
     Indication: HYPERSENSITIVITY
  4. EYE DROPS [Concomitant]
     Indication: HYPERSENSITIVITY
  5. TRILIPTOL [Concomitant]
     Indication: CONVULSION
     Route: 048
     Dates: start: 20070301

REACTIONS (2)
  - NAUSEA [None]
  - VOMITING [None]
